FAERS Safety Report 6645397-7 (Version None)
Quarter: 2010Q1

REPORT INFORMATION
  Report Type: 
  Country: None (occurrence: None)
  Receive Date: 20100322
  Receipt Date: 20100315
  Transmission Date: 20100710
  Serious: Yes (Other)
  Sender: FDA-Public Use
  Company Number: US-AMGEN-QUU399648

PATIENT
  Sex: Female

DRUGS (1)
  1. ARANESP [Suspect]
     Indication: RENAL FAILURE CHRONIC
     Route: 042
     Dates: start: 20090501

REACTIONS (5)
  - APLASIA PURE RED CELL [None]
  - DEVICE RELATED INFECTION [None]
  - LUNG DISORDER [None]
  - SPINAL FRACTURE [None]
  - THERAPEUTIC RESPONSE DECREASED [None]
